FAERS Safety Report 25161736 (Version 1)
Quarter: 2025Q2

REPORT INFORMATION
  Report Type: Spontaneous
  Country: US (occurrence: None)
  Receive Date: 20250404
  Receipt Date: 20250404
  Transmission Date: 20250717
  Serious: Yes (Hospitalization)
  Sender: FDA-CTU
  Company Number: None

PATIENT
  Age: 67 Year
  Sex: Female

DRUGS (9)
  1. TACROLIMUS [Suspect]
     Active Substance: TACROLIMUS
     Indication: Liver transplant
     Dosage: FREQUENCY : TWICE A DAY;?
     Route: 048
     Dates: start: 20230130
  2. PANTOPRAZOLE [Concomitant]
     Active Substance: PANTOPRAZOLE
  3. VITAMIN D2 50,000IU CAPSULES [Concomitant]
  4. VITAMIN A 10,000U CAPSULES [Concomitant]
  5. SPIRONOLACTONE 50MG TABLETS [Concomitant]
  6. VENLAFAXINE [Concomitant]
     Active Substance: VENLAFAXINE HYDROCHLORIDE
  7. XIFAXIN 550MG TABLETS [Concomitant]
  8. HYDROXYZINE HCL 10MG TABLETS [Concomitant]
  9. FUROSEMIDE [Concomitant]
     Active Substance: FUROSEMIDE

REACTIONS (4)
  - Asthenia [None]
  - Confusional state [None]
  - Liver transplant [None]
  - Liver transplant failure [None]

NARRATIVE: CASE EVENT DATE: 20250213
